FAERS Safety Report 24884110 (Version 1)
Quarter: 2025Q1

REPORT INFORMATION
  Report Type: Spontaneous
  Country: CA (occurrence: CA)
  Receive Date: 20250124
  Receipt Date: 20250124
  Transmission Date: 20250409
  Serious: Yes (Disabling, Other)
  Sender: BOEHRINGER INGELHEIM
  Company Number: CA-BoehringerIngelheim-2025-BI-003564

PATIENT
  Age: 76 Year
  Sex: Male
  Weight: 83.9 kg

DRUGS (9)
  1. SYNJARDY [Suspect]
     Active Substance: EMPAGLIFLOZIN\METFORMIN HYDROCHLORIDE
     Indication: Type 2 diabetes mellitus
     Dosage: 5MG/500 MG 2 DAILY BY MOUTH
     Dates: start: 20240301, end: 20240621
  2. RAMIPRIL [Concomitant]
     Active Substance: RAMIPRIL
     Dosage: 1 DAILY
     Dates: start: 2004
  3. MONTELUKAST [Concomitant]
     Active Substance: MONTELUKAST
     Dosage: 1 DAILY
     Dates: start: 2019
  4. ATORVASTATIN CALCIUM [Concomitant]
     Active Substance: ATORVASTATIN CALCIUM
     Dosage: 1 DAILY
     Dates: start: 2004
  5. MIRTAZAPINE [Concomitant]
     Active Substance: MIRTAZAPINE
     Dosage: 1 DAILY
     Dates: start: 2004
  6. FENOFIBRATE [Concomitant]
     Active Substance: FENOFIBRATE
  7. PANTOPRAZOLE [Concomitant]
     Active Substance: PANTOPRAZOLE
     Dosage: 1 TWICE A DAY
     Dates: start: 2021
  8. METFORMIN [Concomitant]
     Active Substance: METFORMIN HYDROCHLORIDE
     Dosage: 1 TWICE A DAY
     Dates: start: 2019
  9. SYMBICORT [Concomitant]
     Active Substance: BUDESONIDE\FORMOTEROL FUMARATE DIHYDRATE
     Dosage: 4 TIMES DAILY

REACTIONS (7)
  - Pain in extremity [Recovering/Resolving]
  - Muscular weakness [Recovering/Resolving]
  - Hypertonic bladder [Recovering/Resolving]
  - Musculoskeletal pain [Recovering/Resolving]
  - Dysstasia [Recovering/Resolving]
  - Tremor [Recovering/Resolving]
  - Weight decreased [Recovering/Resolving]

NARRATIVE: CASE EVENT DATE: 20240330
